FAERS Safety Report 5629670-7 (Version None)
Quarter: 2008Q1

REPORT INFORMATION
  Report Type: 
  Country: None (occurrence: None)
  Receive Date: 20080218
  Receipt Date: 20080207
  Transmission Date: 20080703
  Serious: Yes (Other)
  Sender: FDA-Public Use
  Company Number: B0507365A

PATIENT
  Age: 44 Year
  Sex: Female

DRUGS (2)
  1. TYVERB [Suspect]
     Indication: BREAST CANCER METASTATIC
     Route: 048
  2. CAPECITABINE [Suspect]
     Indication: BREAST CANCER METASTATIC
     Route: 048

REACTIONS (1)
  - THROMBOCYTOPENIA [None]
